FAERS Safety Report 15885951 (Version 2)
Quarter: 2019Q1

REPORT INFORMATION
  Report Type: Spontaneous
  Country: DE (occurrence: DE)
  Receive Date: 20190129
  Receipt Date: 20190220
  Transmission Date: 20190417
  Serious: Yes (Hospitalization)
  Sender: FDA-Public Use
  Company Number: DE-NOVOPROD-643526

PATIENT
  Age: 52 Year
  Sex: Male

DRUGS (1)
  1. NOVORAPID [Suspect]
     Active Substance: INSULIN ASPART
     Indication: TYPE 1 DIABETES MELLITUS
     Dosage: 50 IU, QD
     Route: 058

REACTIONS (3)
  - Loss of consciousness [Unknown]
  - Hypoglycaemia [Unknown]
  - Road traffic accident [Unknown]

NARRATIVE: CASE EVENT DATE: 20190117
